FAERS Safety Report 6107017-X (Version None)
Quarter: 2009Q1

REPORT INFORMATION
  Report Type: 
  Country: None (occurrence: None)
  Receive Date: 20090309
  Receipt Date: 20090206
  Transmission Date: 20090719
  Serious: No
  Sender: FDA-Public Use
  Company Number: US-BAYER-200913119NA

PATIENT
  Age: 34 Year
  Sex: Female

DRUGS (1)
  1. MIRENA [Suspect]
     Indication: CONTRACEPTION
     Route: 015
     Dates: start: 20080103, end: 20090130

REACTIONS (4)
  - ABDOMINAL PAIN LOWER [None]
  - HAIR GROWTH ABNORMAL [None]
  - MOOD SWINGS [None]
  - VAGINAL HAEMORRHAGE [None]
